FAERS Safety Report 19222273 (Version 1)
Quarter: 2021Q2

REPORT INFORMATION
  Report Type: Spontaneous
  Country: US (occurrence: US)
  Receive Date: 20210506
  Receipt Date: 20210506
  Transmission Date: 20210717
  Serious: No
  Sender: FDA-Public Use
  Company Number: None

PATIENT
  Age: 64 Year
  Sex: Male

DRUGS (2)
  1. CYCLOBENZAPRINE (CYCLOBENZAPRINE HCL 10MG TAB) [Suspect]
     Active Substance: CYCLOBENZAPRINE
     Dates: start: 20191112
  2. BACLOFEN (BACLOFEN 20MG TAB) [Suspect]
     Active Substance: BACLOFEN
     Dates: start: 20210211

REACTIONS (2)
  - Fall [None]
  - Gait disturbance [None]

NARRATIVE: CASE EVENT DATE: 20210219
